FAERS Safety Report 4646637-6 (Version None)
Quarter: 2005Q2

REPORT INFORMATION
  Report Type: 
  Country: None (occurrence: None)
  Receive Date: 20050426
  Receipt Date: 20050411
  Transmission Date: 20051028
  Serious: Yes (Death)
  Sender: FDA-Public Use
  Company Number: 2005S1002233

PATIENT
  Age: 78 Year
  Sex: Female

DRUGS (13)
  1. CLOZAPINE [Suspect]
     Indication: SCHIZOPHRENIA, PARANOID TYPE
     Dosage: 100 MG; BID; PO
     Route: 048
     Dates: start: 20030408, end: 20050301
  2. MORPHINE [Concomitant]
  3. LORAZEPAM [Concomitant]
  4. HYOSCYAMINE SULFATE [Concomitant]
  5. PARACETAMOL [Concomitant]
  6. BISACODYL [Concomitant]
  7. LEVOFLOXACIN [Concomitant]
  8. CIRPOFLOXACIN [Concomitant]
  9. FERROUS SULFATE TAB [Concomitant]
  10. VITAMIN NOS [Concomitant]
  11. ACETYLSALICYLIC ACID/DIPYRIDAMOLE [Concomitant]
  12. ALBUTEROL [Concomitant]
  13. IPRATROPIUM BROMIDE [Concomitant]

REACTIONS (1)
  - DEATH [None]
